FAERS Safety Report 7921757-9 (Version None)
Quarter: 2011Q4

REPORT INFORMATION
  Report Type: 
  Country: None (occurrence: None)
  Receive Date: 20111117
  Receipt Date: 20111107
  Transmission Date: 20120403
  Serious: Yes (Other)
  Sender: FDA-Public Use
  Company Number: FR-GLAXOSMITHKLINE-B0750067A

PATIENT
  Sex: Female
  Weight: 60 kg

DRUGS (2)
  1. LEVOTHYROXINE SODIUM [Concomitant]
     Route: 048
  2. PROMACTA [Suspect]
     Indication: IDIOPATHIC THROMBOCYTOPENIC PURPURA
     Route: 048
     Dates: start: 20110301

REACTIONS (6)
  - SKIN BURNING SENSATION [None]
  - PSORIASIS [None]
  - ECZEMA [None]
  - PAPULE [None]
  - LICHENOID KERATOSIS [None]
  - HEADACHE [None]
